FAERS Safety Report 18035970 (Version 8)
Quarter: 2021Q1

REPORT INFORMATION
  Report Type: Spontaneous
  Country: CA (occurrence: CA)
  Receive Date: 20200717
  Receipt Date: 20210329
  Transmission Date: 20210419
  Serious: Yes (Other)
  Sender: FDA-Public Use
  Company Number: CA-CELLTRION INC.-2020CA024285

PATIENT

DRUGS (10)
  1. INFLECTRA [Suspect]
     Active Substance: INFLIXIMAB-DYYB
     Dosage: 5 MG/KG Q 0, 2, 6 WEEKS, THEN EVERY 8 WEEKS (300MG)
     Route: 042
     Dates: start: 20210121, end: 20210121
  2. PENTASA [Concomitant]
     Active Substance: MESALAMINE
     Dosage: UNK
     Route: 065
  3. INFLECTRA [Suspect]
     Active Substance: INFLIXIMAB-DYYB
     Dosage: 5 MG/KG , EVERY 0, 2, 6 WEEKS, THEN EVERY 8 WEEKS
     Route: 042
     Dates: start: 20200806, end: 20200806
  4. INFLECTRA [Suspect]
     Active Substance: INFLIXIMAB-DYYB
     Dosage: 5 MG/KG Q 0, 2, 6 WEEKS, THEN EVERY 8 WEEKS (300MG)
     Route: 042
     Dates: start: 20201126, end: 20201126
  5. INFLECTRA [Suspect]
     Active Substance: INFLIXIMAB-DYYB
     Dosage: 5 MG/KG, EVERY 0, 2 WEEK DOSE THEN EVERY 8 WEEKS
     Route: 042
     Dates: start: 20201001, end: 20201001
  6. INFLECTRA [Suspect]
     Active Substance: INFLIXIMAB-DYYB
     Dosage: 5 MG/KG Q 0, 2, 6 WEEKS, THEN EVERY 8 WEEKS (300 MG)
     Route: 042
     Dates: start: 20210121, end: 20210121
  7. IMURAN [Concomitant]
     Active Substance: AZATHIOPRINE
     Dosage: UNK
     Route: 065
  8. INFLECTRA [Suspect]
     Active Substance: INFLIXIMAB-DYYB
     Dosage: 5 MG/KG Q 0, 2, 6 WEEKS, THEN EVERY 8 WEEKS (300 MG)
     Route: 042
     Dates: start: 20210318
  9. INFLECTRA [Suspect]
     Active Substance: INFLIXIMAB-DYYB
     Indication: COLITIS ULCERATIVE
     Dosage: 5 MG/KG Q 0, 2, 6 WEEKS, THEN EVERY 8 WEEKS
     Route: 042
     Dates: start: 20200708, end: 20200708
  10. PREDNISONE. [Concomitant]
     Active Substance: PREDNISONE
     Dosage: UNK
     Route: 065

REACTIONS (21)
  - Pain in jaw [Unknown]
  - Blood pressure decreased [Unknown]
  - Asthenia [Unknown]
  - Heart rate increased [Unknown]
  - Weight increased [Unknown]
  - Oral disorder [Unknown]
  - Throat irritation [Unknown]
  - Toothache [Unknown]
  - Pain [Unknown]
  - Incorrect dose administered [Unknown]
  - Condition aggravated [Recovering/Resolving]
  - Oropharyngeal pain [Unknown]
  - Nervousness [Unknown]
  - Ear disorder [Unknown]
  - Oral pain [Unknown]
  - Increased appetite [Unknown]
  - Candida infection [Recovering/Resolving]
  - Dysphonia [Unknown]
  - Stress [Unknown]
  - Paranasal sinus discomfort [Unknown]
  - Tremor [Unknown]

NARRATIVE: CASE EVENT DATE: 2020
